FAERS Safety Report 4603154-7 (Version None)
Quarter: 2005Q1

REPORT INFORMATION
  Report Type: 
  Country: None (occurrence: None)
  Receive Date: 20050307
  Receipt Date: 20050210
  Transmission Date: 20050727
  Serious: Yes (Disabling)
  Sender: FDA-Public Use
  Company Number: 2005-BP-02133BR

PATIENT
  Age: 32 Year
  Sex: Female

DRUGS (1)
  1. MOVATEC AMPOULES (MELOXICAM) (AM) (MELOXICAM) [Suspect]
     Indication: INTERVERTEBRAL DISC PROTRUSION
     Dosage: 15 MG (15 MG, 1 AMP OAD) IM
     Route: 030
     Dates: start: 20050206, end: 20050206

REACTIONS (9)
  - APHONIA [None]
  - CHOKING [None]
  - DYSPNOEA [None]
  - EYE SWELLING [None]
  - NAUSEA [None]
  - OEDEMA PERIPHERAL [None]
  - PRURITUS [None]
  - RASH [None]
  - RESPIRATORY ARREST [None]
